FAERS Safety Report 7489212-0 (Version None)
Quarter: 2011Q2

REPORT INFORMATION
  Report Type: 
  Country: None (occurrence: None)
  Receive Date: 20110518
  Receipt Date: 20110510
  Transmission Date: 20111010
  Serious: Yes (Death)
  Sender: FDA-Public Use
  Company Number: PL-CELGENEUS-129-21880-11042350

PATIENT
  Sex: Male

DRUGS (5)
  1. PLATELETS [Concomitant]
     Route: 051
  2. DEXAMETHASONE [Concomitant]
     Route: 051
     Dates: start: 20100101, end: 20110101
  3. RED BLOOD CELLS [Concomitant]
     Route: 051
  4. REVLIMID [Suspect]
     Dosage: 5 MILLIGRAM
     Route: 048
     Dates: start: 20110323
  5. REVLIMID [Suspect]
     Dosage: 25 MILLIGRAM
     Route: 048
     Dates: start: 20110406, end: 20110411

REACTIONS (2)
  - HODGKIN'S DISEASE [None]
  - RESPIRATORY FAILURE [None]
